FAERS Safety Report 8219895-9 (Version None)
Quarter: 2012Q1

REPORT INFORMATION
  Report Type: 
  Country: None (occurrence: None)
  Receive Date: 20120319
  Receipt Date: 20120308
  Transmission Date: 20120608
  Serious: Yes (Disabling)
  Sender: FDA-Public Use
  Company Number: GB-ASTRAZENECA-2012SE16599

PATIENT
  Sex: Male

DRUGS (1)
  1. FELODIPINE [Suspect]
     Route: 048

REACTIONS (4)
  - MENTAL IMPAIRMENT [None]
  - DRUG ADMINISTRATION ERROR [None]
  - FATIGUE [None]
  - ACTIVITIES OF DAILY LIVING IMPAIRED [None]
